FAERS Safety Report 12478369 (Version 1)
Quarter: 2016Q2

REPORT INFORMATION
  Report Type: Other
  Country: PT (occurrence: PT)
  Receive Date: 20160618
  Receipt Date: 20160618
  Transmission Date: 20160815
  Serious: Yes (Other)
  Sender: FDA-Public Use
  Company Number: PT-LUPIN PHARMACEUTICALS INC.-2016-02679

PATIENT
  Age: 50 Year
  Sex: Male

DRUGS (4)
  1. VANCOMYCIN [Suspect]
     Active Substance: VANCOMYCIN
     Indication: AORTIC VALVE REPLACEMENT
  2. AMIKACIN [Concomitant]
     Active Substance: AMIKACIN
     Indication: AORTIC VALVE REPLACEMENT
  3. VANCOMYCIN [Suspect]
     Active Substance: VANCOMYCIN
     Indication: CORONARY ARTERY BYPASS
     Route: 065
  4. AMIKACIN [Concomitant]
     Active Substance: AMIKACIN
     Indication: ANTIBIOTIC PROPHYLAXIS
     Route: 065

REACTIONS (1)
  - Linear IgA disease [Recovered/Resolved]
